FAERS Safety Report 13855631 (Version 1)
Quarter: 2017Q3

REPORT INFORMATION
  Report Type: Spontaneous
  Country: US (occurrence: US)
  Receive Date: 20170810
  Receipt Date: 20170810
  Transmission Date: 20171127
  Serious: No
  Sender: FDA-Public Use
  Company Number: US-VIFOR (INTERNATIONAL) INC.-VIT-2017-05275

PATIENT
  Sex: Female

DRUGS (11)
  1. LASIX [Concomitant]
     Active Substance: FUROSEMIDE
  2. ADVIL [Concomitant]
     Active Substance: IBUPROFEN
  3. TRAMADOL HYDROCHLORIDE. [Concomitant]
     Active Substance: TRAMADOL HYDROCHLORIDE
  4. METOPROLOL TARTRATE. [Concomitant]
     Active Substance: METOPROLOL TARTRATE
  5. TRAZODONE HYDROCHLORIDE. [Concomitant]
     Active Substance: TRAZODONE HYDROCHLORIDE
  6. PRAVASTATIN SODIUM. [Concomitant]
     Active Substance: PRAVASTATIN SODIUM
  7. LEVETIRACETAM. [Concomitant]
     Active Substance: LEVETIRACETAM
  8. BENAZEPRIL HYDROCHLORIDE/AMLODIPINE BESYLATE [Concomitant]
  9. DONEPEZIL HYDROCHLORIDE. [Concomitant]
     Active Substance: DONEPEZIL HYDROCHLORIDE
  10. VELTASSA [Suspect]
     Active Substance: PATIROMER
     Indication: HYPERKALAEMIA
     Route: 048
     Dates: start: 20161011
  11. RANITIDINE HYDROCHLORIDE. [Concomitant]
     Active Substance: RANITIDINE HYDROCHLORIDE

REACTIONS (2)
  - Abdominal pain upper [Unknown]
  - Drug dose omission [Unknown]
